FAERS Safety Report 4898082-6 (Version None)
Quarter: 2006Q1

REPORT INFORMATION
  Report Type: 
  Country: None (occurrence: None)
  Receive Date: 20060130
  Receipt Date: 20060124
  Transmission Date: 20060701
  Serious: Yes (Disabling)
  Sender: FDA-Public Use
  Company Number: CIP06000189

PATIENT
  Sex: Female

DRUGS (1)
  1. ACTONEL [Suspect]

REACTIONS (1)
  - OSTEONECROSIS [None]
